FAERS Safety Report 10643248 (Version 1)
Quarter: 2014Q4

REPORT INFORMATION
  Report Type: Spontaneous
  Country: US (occurrence: None)
  Receive Date: 20141121
  Receipt Date: 20141121
  Transmission Date: 20150529
  Serious: No
  Sender: FDA-Public Use
  Company Number: 163-10004-14071530

PATIENT
  Age: 62 Year
  Sex: Female

DRUGS (5)
  1. DOXYCYCLINE HYCLATE. [Concomitant]
     Active Substance: DOXYCYCLINE HYCLATE
  2. PREDNISONE(PREDNISONE) [Concomitant]
  3. SULFASALAZINE(SULFASALZINE) [Concomitant]
  4. NASONEX(MOMETASONE FUROATE) [Concomitant]
  5. OTEZLA [Suspect]
     Active Substance: APREMILAST
     Indication: PSORIATIC ARTHROPATHY
     Route: 048
     Dates: start: 20140623

REACTIONS (3)
  - Insomnia [None]
  - Diarrhoea [None]
  - Nausea [None]
